FAERS Safety Report 14773787 (Version 2)
Quarter: 2018Q2

REPORT INFORMATION
  Report Type: Spontaneous
  Country: CZ (occurrence: CZ)
  Receive Date: 20180418
  Receipt Date: 20180517
  Transmission Date: 20180711
  Serious: Yes (Other)
  Sender: FDA-Public Use
  Company Number: CZ-BRISTOL-MYERS SQUIBB COMPANY-BMS-2018-033396

PATIENT
  Age: 55 Year
  Sex: Female

DRUGS (6)
  1. LETROX [Concomitant]
     Active Substance: LEVOTHYROXINE SODIUM
     Indication: HYPOTHYROIDISM
     Dosage: UNK, QD
     Route: 048
  2. PREDNISONE                         /00044702/ [Concomitant]
     Active Substance: PREDNISONE
     Indication: OEDEMA
     Dosage: 10 MG, DAILY
     Route: 048
     Dates: start: 201710
  3. DEGAN [Concomitant]
     Active Substance: METOCLOPRAMIDE HYDROCHLORIDE
     Indication: NAUSEA
     Dosage: 10 MG, TID
     Route: 048
     Dates: start: 201710
  4. NOLPAZA [Concomitant]
     Active Substance: PANTOPRAZOLE SODIUM
     Indication: PROPHYLAXIS
     Dosage: 20 MG, QD
     Route: 048
     Dates: start: 201710
  5. NIVOLUMAB [Suspect]
     Active Substance: NIVOLUMAB
     Indication: RENAL CANCER
     Dosage: 3 MG/KG, Q2WK
     Route: 042
     Dates: start: 20171113, end: 20180313
  6. MEGACE ORAL SUSPENSION [Concomitant]
     Indication: DECREASED APPETITE
     Dosage: 20 ML, UNK
     Route: 048
     Dates: start: 201710, end: 201712

REACTIONS (7)
  - Skin toxicity [Recovered/Resolved]
  - Neurological symptom [Unknown]
  - Tumour pseudoprogression [Unknown]
  - Gastrointestinal disorder [Unknown]
  - Hypercalcaemia [Unknown]
  - Malignant neoplasm progression [Unknown]
  - Pain in extremity [Unknown]

NARRATIVE: CASE EVENT DATE: 20171120
